FAERS Safety Report 13264473 (Version 3)
Quarter: 2017Q2

REPORT INFORMATION
  Report Type: Spontaneous
  Country: FR (occurrence: FR)
  Receive Date: 20170223
  Receipt Date: 20170420
  Transmission Date: 20170830
  Serious: Yes (Hospitalization)
  Sender: FDA-Public Use
  Company Number: FR-FERRINGPH-2017FE00744

PATIENT

DRUGS (6)
  1. MENOPUR [Suspect]
     Active Substance: FOLLITROPIN\LUTEINIZING HORMONE
     Dosage: 375 IU, DAILY
     Route: 058
     Dates: start: 201601
  2. CHORIONIC GONADOTROPHIN [Suspect]
     Active Substance: CHORIOGONADOTROPIN ALFA
     Indication: IN VITRO FERTILISATION
     Dosage: 1 INJECTION ON 09-FEB-2016 AND 1 INJECTION ON 13-FEB-2016
     Route: 030
     Dates: start: 20160209, end: 20160213
  3. OVITRELLE [Suspect]
     Active Substance: CHORIOGONADOTROPIN ALFA
     Indication: OVULATION INDUCTION
     Dosage: 250 ?G, ONCE/SINGLE
     Route: 058
     Dates: start: 20160207, end: 20160207
  4. MENOPUR [Suspect]
     Active Substance: FOLLITROPIN\LUTEINIZING HORMONE
     Indication: OVULATION INDUCTION
     Dosage: 450 IU, DAILY
     Route: 058
     Dates: end: 20160207
  5. ESTIMA                             /00110701/ [Suspect]
     Active Substance: PROGESTERONE
     Indication: IN VITRO FERTILISATION
     Dosage: 200 MG, 3 TIMES DAILY
     Route: 067
     Dates: start: 20160209, end: 20160213
  6. DECAPEPTYL (ACETATE) [Suspect]
     Active Substance: TRIPTORELIN ACETATE
     Indication: OVULATION INDUCTION
     Dosage: 0.025 MG, DAILY
     Route: 058
     Dates: start: 201601, end: 20160207

REACTIONS (1)
  - Subarachnoid haemorrhage [Recovered/Resolved]

NARRATIVE: CASE EVENT DATE: 20160214
